FAERS Safety Report 5114255-1 (Version None)
Quarter: 2006Q3

REPORT INFORMATION
  Report Type: 
  Country: None (occurrence: None)
  Receive Date: 20060802
  Receipt Date: 20060615
  Transmission Date: 20061208
  Serious: No
  Sender: FDA-Public Use
  Company Number: 200615470US

PATIENT
  Age: 45 Year
  Sex: Male

DRUGS (3)
  1. KETEK [Suspect]
  2. HYDROXYCHLOROQUINE SULFATE [Suspect]
  3. MINOCYCLINE HCL [Concomitant]

REACTIONS (3)
  - NAIL DISCOLOURATION [None]
  - PHOTOSENSITIVITY REACTION [None]
  - SKIN DISCOLOURATION [None]
